FAERS Safety Report 16771523 (Version 1)
Quarter: 2019Q3

REPORT INFORMATION
  Report Type: Spontaneous
  Country: CA (occurrence: CA)
  Receive Date: 20190904
  Receipt Date: 20190904
  Transmission Date: 20191005
  Serious: Yes (Life-Threatening, Hospitalization)
  Sender: FDA-Public Use
  Company Number: CA-PFIZER INC-2019381278

PATIENT
  Sex: Male

DRUGS (4)
  1. BRILINTA [Suspect]
     Active Substance: TICAGRELOR
     Dosage: 180 MG, UNK
     Route: 048
  2. HEPARIN SODIUM. [Suspect]
     Active Substance: HEPARIN SODIUM
     Dosage: UNK
     Route: 042
  3. INTEGRILIN [Suspect]
     Active Substance: EPTIFIBATIDE
     Dosage: UNK
     Route: 065
  4. ACETYLSALICYLIC ACID [Suspect]
     Active Substance: ASPIRIN
     Indication: MYOCARDIAL INFARCTION
     Dosage: 81 MG, 1X/DAY
     Route: 048

REACTIONS (3)
  - Condition aggravated [Recovered/Resolved]
  - Vascular stent thrombosis [Recovered/Resolved]
  - Myocardial infarction [Recovered/Resolved]
